FAERS Safety Report 5106765-8 (Version None)
Quarter: 2006Q3

REPORT INFORMATION
  Report Type: 
  Country: None (occurrence: None)
  Receive Date: 20060731
  Receipt Date: 20060420
  Transmission Date: 20061208
  Serious: Yes (Other)
  Sender: FDA-Public Use
  Company Number: US-JNJFOC-20050804061

PATIENT
  Age: 10 Year
  Sex: Female
  Weight: 34.0198 kg

DRUGS (4)
  1. RISPERDAL [Suspect]
     Indication: PSYCHOTIC DISORDER
     Dosage: 0.5 MG, 2 IN 1 DAY, ORAL
     Route: 048
     Dates: start: 20030919, end: 20030920
  2. ZOLOFT [Concomitant]
  3. ADDERALL (OBETROL) [Concomitant]
  4. ATOMOXETINE HYDROCHLORIDE [Concomitant]

REACTIONS (14)
  - CONVULSION [None]
  - DECREASED ACTIVITY [None]
  - DECREASED APPETITE [None]
  - DECREASED INTEREST [None]
  - DEPRESSION [None]
  - DISTURBANCE IN ATTENTION [None]
  - ENURESIS [None]
  - EYE ROLLING [None]
  - HALLUCINATION, AUDITORY [None]
  - HALLUCINATION, VISUAL [None]
  - HYPERSENSITIVITY [None]
  - INSOMNIA [None]
  - MUSCLE SPASMS [None]
  - MUSCULOSKELETAL STIFFNESS [None]
